FAERS Safety Report 11849574 (Version 1)
Quarter: 2015Q4

REPORT INFORMATION
  Report Type: Spontaneous
  Country: FR (occurrence: FR)
  Receive Date: 20151218
  Receipt Date: 20151218
  Transmission Date: 20160305
  Serious: Yes (Hospitalization)
  Sender: FDA-Public Use
  Company Number: FR-SYNTHON BV-NL01PV15_40207

PATIENT
  Age: 75 Year
  Sex: Female

DRUGS (2)
  1. LEVOCITIRIZINE BIOGARAN [Suspect]
     Active Substance: LEVOCETIRIZINE
     Indication: ECZEMA EYELIDS
     Dosage: 5 MG, SINGLE
     Route: 048
     Dates: start: 20151124, end: 20151124
  2. TEMESTA                            /00273201/ [Concomitant]
     Active Substance: LORAZEPAM
     Dosage: UNK

REACTIONS (30)
  - Throat tightness [Not Recovered/Not Resolved]
  - Oedema [Not Recovered/Not Resolved]
  - Nausea [Not Recovered/Not Resolved]
  - Peripheral swelling [Not Recovered/Not Resolved]
  - Dyspepsia [Not Recovered/Not Resolved]
  - Myalgia [Not Recovered/Not Resolved]
  - Pharyngeal oedema [Not Recovered/Not Resolved]
  - Nasal congestion [Not Recovered/Not Resolved]
  - Dizziness [Not Recovered/Not Resolved]
  - Malaise [Not Recovered/Not Resolved]
  - Abdominal pain [Not Recovered/Not Resolved]
  - Palpitations [Not Recovered/Not Resolved]
  - Contusion [Not Recovered/Not Resolved]
  - Dyspnoea [Not Recovered/Not Resolved]
  - Paraesthesia [Not Recovered/Not Resolved]
  - Hallucination [Not Recovered/Not Resolved]
  - Hypersensitivity [Not Recovered/Not Resolved]
  - Somnolence [Not Recovered/Not Resolved]
  - Visual impairment [Not Recovered/Not Resolved]
  - Rash [Not Recovered/Not Resolved]
  - Swollen tongue [Not Recovered/Not Resolved]
  - Dysphagia [Not Recovered/Not Resolved]
  - Oedema peripheral [Not Recovered/Not Resolved]
  - Diarrhoea [Not Recovered/Not Resolved]
  - Swelling face [Not Recovered/Not Resolved]
  - Tremor [Not Recovered/Not Resolved]
  - Hypertension [Not Recovered/Not Resolved]
  - Vomiting [Not Recovered/Not Resolved]
  - Pruritus [Not Recovered/Not Resolved]
  - Fatigue [Not Recovered/Not Resolved]

NARRATIVE: CASE EVENT DATE: 2015
